FAERS Safety Report 13710113 (Version 1)
Quarter: 2017Q3

REPORT INFORMATION
  Report Type: Spontaneous
  Country: US (occurrence: US)
  Receive Date: 20170703
  Receipt Date: 20170703
  Transmission Date: 20171127
  Serious: No
  Sender: FDA-Public Use
  Company Number: US-TEVA-748174ACC

PATIENT
  Age: 60 Year
  Sex: Male

DRUGS (1)
  1. LIDOCAINE TOPICAL 5 PERCENT PATCH [Suspect]
     Active Substance: LIDOCAINE
     Dosage: FORM OF ADMINISTRATION: PATCH

REACTIONS (1)
  - False positive investigation result [Unknown]
